FAERS Safety Report 20891284 (Version 1)
Quarter: 2022Q2

REPORT INFORMATION
  Report Type: Spontaneous
  Country: JP (occurrence: JP)
  Receive Date: 20220530
  Receipt Date: 20220530
  Transmission Date: 20220721
  Serious: Yes (Other)
  Sender: FDA-Public Use
  Company Number: JP-PFIZER INC-202200727654

PATIENT
  Age: 27 Year
  Sex: Female

DRUGS (3)
  1. RITUXIMAB [Suspect]
     Active Substance: RITUXIMAB
     Indication: Cryoglobulinaemia
     Dosage: 375 MG/M2, WEEKLY (4 CONSECUTIVE WEEKS)
  2. RITUXIMAB [Suspect]
     Active Substance: RITUXIMAB
     Indication: Sjogren^s syndrome
     Dosage: 375 MG/M2 (EVERY 6 MONTHS)
  3. RITUXIMAB [Suspect]
     Active Substance: RITUXIMAB
     Dosage: 375 MG/M2, WEEKLY

REACTIONS (4)
  - Pneumonia pseudomonal [Unknown]
  - Anaphylactic shock [Unknown]
  - Bronchiectasis [Unknown]
  - Drug ineffective [Recovering/Resolving]
